FAERS Safety Report 5542032-6 (Version None)
Quarter: 2007Q4

REPORT INFORMATION
  Report Type: 
  Country: None (occurrence: None)
  Receive Date: 20071210
  Receipt Date: 20070831
  Transmission Date: 20080405
  Serious: Yes (Other)
  Sender: FDA-Public Use
  Company Number: US-ASTRAZENECA-2006UW03003

PATIENT
  Age: 45 Year
  Sex: Male
  Weight: 86.4 kg

DRUGS (8)
  1. SEROQUEL [Suspect]
     Indication: ANXIETY
     Route: 048
     Dates: start: 20000101, end: 20030701
  2. SEROQUEL [Suspect]
     Indication: DEPRESSION
     Route: 048
     Dates: start: 20000101, end: 20030701
  3. SEROQUEL [Suspect]
     Indication: BIPOLAR DISORDER
     Route: 048
     Dates: start: 20000101, end: 20030701
  4. RISPERDAL [Concomitant]
     Dates: start: 20030101
  5. OLANZAPINE [Concomitant]
     Dosage: 50TO 10 MG
     Dates: start: 20030101
  6. THORAZINE [Concomitant]
     Dates: start: 20010101
  7. PAXIL [Concomitant]
     Dosage: 12.5 TO 25 MG
     Dates: start: 19990101
  8. XANAX [Concomitant]
     Dates: start: 19990101

REACTIONS (3)
  - ANGIOPLASTY [None]
  - DIABETES MELLITUS [None]
  - WEIGHT INCREASED [None]
